FAERS Safety Report 19317043 (Version 1)
Quarter: 2021Q2

REPORT INFORMATION
  Report Type: Spontaneous
  Country: CA (occurrence: CA)
  Receive Date: 20210527
  Receipt Date: 20210527
  Transmission Date: 20210717
  Serious: Yes (Hospitalization, Disabling, Other)
  Sender: FDA-Public Use
  Company Number: NVSC2021CA118282

PATIENT
  Age: 59 Year
  Sex: Male
  Weight: 85 kg

DRUGS (2)
  1. MEKINIST [Suspect]
     Active Substance: TRAMETINIB DIMETHYL SULFOXIDE
     Indication: LUNG CARCINOMA CELL TYPE UNSPECIFIED STAGE IV
     Dosage: 2 MG, QD
     Route: 048
  2. TAFINLAR [Suspect]
     Active Substance: DABRAFENIB MESYLATE
     Indication: LUNG CARCINOMA CELL TYPE UNSPECIFIED STAGE IV
     Dosage: 150 MG, BID
     Route: 048

REACTIONS (7)
  - Stomatitis [Recovered/Resolved]
  - Hepatic failure [Recovered/Resolved]
  - Hyponatraemia [Recovered/Resolved]
  - Rash maculo-papular [Recovered/Resolved]
  - Altered state of consciousness [Recovered/Resolved]
  - Pancytopenia [Recovered/Resolved]
  - Body temperature increased [Recovered/Resolved]
